FAERS Safety Report 5904889-6 (Version None)
Quarter: 2008Q4

REPORT INFORMATION
  Report Type: 
  Country: None (occurrence: None)
  Receive Date: 20081001
  Receipt Date: 20080926
  Transmission Date: 20090506
  Serious: Yes (Hospitalization)
  Sender: FDA-Public Use
  Company Number: A0750079A

PATIENT
  Age: 43 Year
  Sex: Female
  Weight: 152.7 kg

DRUGS (4)
  1. AVANDIA [Suspect]
     Indication: DIABETES MELLITUS
     Dosage: 8MG PER DAY
     Route: 048
     Dates: start: 20020201, end: 20070801
  2. INSULIN [Concomitant]
  3. METFORMIN HCL [Concomitant]
  4. EFFEXOR [Concomitant]

REACTIONS (11)
  - ANGINA PECTORIS [None]
  - ARRHYTHMIA [None]
  - BLOOD CHOLESTEROL INCREASED [None]
  - CARDIAC DISORDER [None]
  - CARDIAC FAILURE CONGESTIVE [None]
  - FLUID RETENTION [None]
  - LUNG INJURY [None]
  - MOTOR DYSFUNCTION [None]
  - PERIPHERAL VASCULAR DISORDER [None]
  - POOR PERIPHERAL CIRCULATION [None]
  - PULMONARY OEDEMA [None]
